FAERS Safety Report 15815226 (Version 2)
Quarter: 2019Q1

REPORT INFORMATION
  Report Type: Spontaneous
  Country: NL (occurrence: NL)
  Receive Date: 20190112
  Receipt Date: 20190123
  Transmission Date: 20190417
  Serious: Yes (Hospitalization, Other)
  Sender: FDA-Public Use
  Company Number: NL-ACCORD-097486

PATIENT
  Age: 75 Year
  Sex: Female

DRUGS (10)
  1. NITRAZEPAM [Concomitant]
     Active Substance: NITRAZEPAM
  2. COLECALCIFEROL [Concomitant]
     Active Substance: CHOLECALCIFEROL
  3. MACROGOL/MACROGOL STEARATE [Concomitant]
  4. SIMVASTATIN. [Concomitant]
     Active Substance: SIMVASTATIN
  5. CLOZAPINE. [Suspect]
     Active Substance: CLOZAPINE
     Indication: MAJOR DEPRESSION
     Dosage: 200 MG ONCE DAILY, REDUCED TO 100 MG ONCE DAILY
  6. CODEINE PHOSPHATE/PARACETAMOL [Concomitant]
  7. AMOXICILLIN. [Concomitant]
     Active Substance: AMOXICILLIN
     Indication: INFECTION
  8. ASCORBIC ACID. [Concomitant]
     Active Substance: ASCORBIC ACID
  9. RISPERIDONE. [Suspect]
     Active Substance: RISPERIDONE
     Indication: MAJOR DEPRESSION
  10. LORAZEPAM. [Concomitant]
     Active Substance: LORAZEPAM

REACTIONS (5)
  - Myalgia [Unknown]
  - Incorrect dose administered [Unknown]
  - Tremor [Unknown]
  - Gait disturbance [Unknown]
  - Dystonia [Recovered/Resolved]

NARRATIVE: CASE EVENT DATE: 2018
